FAERS Safety Report 24456081 (Version 2)
Quarter: 2024Q4

REPORT INFORMATION
  Report Type: Spontaneous
  Country: US (occurrence: US)
  Receive Date: 20241017
  Receipt Date: 20241018
  Transmission Date: 20250114
  Serious: No
  Sender: ROCHE
  Company Number: US-ROCHE-3511820

PATIENT
  Age: 30 Year
  Sex: Female

DRUGS (9)
  1. RITUXAN [Suspect]
     Active Substance: RITUXIMAB
     Indication: Dermatomyositis
     Route: 042
  2. VALACYCLOVIR HYDROCHLORIDE [Concomitant]
     Active Substance: VALACYCLOVIR HYDROCHLORIDE
  3. MYCOPHENOLIC ACID [Concomitant]
     Active Substance: MYCOPHENOLIC ACID
  4. UPADACITINIB [Concomitant]
     Active Substance: UPADACITINIB
  5. UPADACITINIB [Concomitant]
     Active Substance: UPADACITINIB
  6. METHOTREXATE [Concomitant]
     Active Substance: METHOTREXATE
     Dosage: FREQUENCY TEXT:ONCE WEEKLY
  7. MYCOPHENOLATE MOFETIL [Concomitant]
     Active Substance: MYCOPHENOLATE MOFETIL
  8. AZATHIOPRINE [Concomitant]
     Active Substance: AZATHIOPRINE
  9. PREDNISONE [Concomitant]
     Active Substance: PREDNISONE

REACTIONS (2)
  - Herpes virus infection [Recovered/Resolved]
  - Oral mucosal blistering [Recovered/Resolved]
